FAERS Safety Report 7247878-4 (Version None)
Quarter: 2011Q1

REPORT INFORMATION
  Report Type: 
  Country: None (occurrence: None)
  Receive Date: 20110127
  Receipt Date: 20110125
  Transmission Date: 20110831
  Serious: No
  Sender: FDA-Public Use
  Company Number: US-PFIZER INC-2011018245

PATIENT
  Sex: Female
  Weight: 90.703 kg

DRUGS (5)
  1. CYMBALTA [Concomitant]
     Indication: BIPOLAR I DISORDER
     Dosage: 60 MG, UNK
  2. GEODON [Suspect]
     Indication: BIPOLAR I DISORDER
     Dosage: 120 MG, DAILY
     Route: 048
     Dates: start: 20110101
  3. KLONOPIN [Concomitant]
     Indication: BIPOLAR I DISORDER
     Dosage: 1 MG, UNK
  4. WELLBUTRIN [Interacting]
     Indication: BIPOLAR I DISORDER
     Dosage: 150 MG, DAILY
     Route: 048
  5. LAMICTAL [Concomitant]
     Indication: BIPOLAR I DISORDER
     Dosage: 200 MG, UNK

REACTIONS (2)
  - DRUG INTERACTION [None]
  - ANXIETY [None]
